FAERS Safety Report 8215912-0 (Version None)
Quarter: 2012Q1

REPORT INFORMATION
  Report Type: 
  Country: None (occurrence: None)
  Receive Date: 20120316
  Receipt Date: 20120308
  Transmission Date: 20120608
  Serious: Yes (Hospitalization)
  Sender: FDA-Public Use
  Company Number: US-BAYER-2012-023943

PATIENT
  Age: 42 Year
  Sex: Female

DRUGS (10)
  1. MULTI-VITAMIN [Concomitant]
     Dosage: ONE TABLET DAILY
  2. DEPO-MEDROL [Concomitant]
     Dosage: 40 MG, UNK
  3. TAGAMET [Concomitant]
     Indication: GASTROOESOPHAGEAL REFLUX DISEASE
     Dosage: UNK UNK, PRN
     Route: 048
  4. ACETAMINOPHEN [Concomitant]
     Indication: MIGRAINE
     Dosage: 1000 MG, EVERY 6 HOURS OR AS NEEDED
     Route: 048
  5. YAZ [Suspect]
  6. CALCIUM [Concomitant]
     Dosage: 1260 MG, QD
     Route: 048
  7. IBUPROFEN [Concomitant]
     Indication: HEADACHE
     Dosage: 800 MG, THREE TIMES DAILY OR AS NEEDED
     Route: 048
  8. VICODIN ES [Concomitant]
     Dosage: 750 OR 7.5 ONE ORAL EVERY 4H OR AS NEEDED
     Route: 048
  9. DURAMORPH PF [Concomitant]
     Dosage: 5 MG, UNK
  10. RELPAX [Concomitant]
     Indication: MIGRAINE
     Dosage: 40 MG, PRN

REACTIONS (3)
  - PULMONARY EMBOLISM [None]
  - CHEST PAIN [None]
  - DEEP VEIN THROMBOSIS [None]
